FAERS Safety Report 8158985-6 (Version None)
Quarter: 2012Q1

REPORT INFORMATION
  Report Type: 
  Country: None (occurrence: None)
  Receive Date: 20120223
  Receipt Date: 20120221
  Transmission Date: 20120608
  Serious: No
  Sender: FDA-Public Use
  Company Number: US-PFIZER INC-2012046891

PATIENT
  Sex: Female
  Weight: 58.957 kg

DRUGS (11)
  1. SIMVASTATIN [Concomitant]
     Indication: BLOOD CHOLESTEROL INCREASED
     Dosage: 10 MG, DAILY
  2. CALCIUM [Concomitant]
     Dosage: 500 MG, DAILY
  3. ZINC [Concomitant]
     Dosage: 60 MG, DAILY
  4. RAMIPRIL [Concomitant]
     Indication: DIABETES MELLITUS
     Dosage: 5 MG, DAILY
  5. FISH OIL [Concomitant]
     Dosage: 1200 MG, DAILY
  6. CO-Q-10 [Concomitant]
     Dosage: 100 MG, DAILY
  7. ASCORBIC ACID [Concomitant]
     Dosage: 500 MG, DAILY
  8. CHANTIX [Suspect]
     Indication: SMOKING CESSATION THERAPY
     Dosage: 0.5 MG, DAILY
     Route: 048
     Dates: start: 20120210, end: 20120201
  9. ASPIRIN [Concomitant]
     Indication: DIABETES MELLITUS
     Dosage: 81 MG, DAILY
  10. CHANTIX [Suspect]
     Dosage: 1 MG, 2X/DAY
     Route: 048
     Dates: start: 20120201
  11. INSULIN [Concomitant]
     Indication: DIABETES MELLITUS
     Dosage: UNK, DAILY

REACTIONS (4)
  - EXPIRED DRUG ADMINISTERED [None]
  - MUSCLE SPASMS [None]
  - PRURITUS [None]
  - SKIN DISORDER [None]
